FAERS Safety Report 20579728 (Version 2)
Quarter: 2022Q1

REPORT INFORMATION
  Report Type: Spontaneous
  Country: US (occurrence: US)
  Receive Date: 20220310
  Receipt Date: 20220325
  Transmission Date: 20220424
  Serious: Yes (Other)
  Sender: FDA-Public Use
  Company Number: US-TEVA-2022-US-2014127

PATIENT
  Age: 62 Year
  Sex: Male

DRUGS (4)
  1. AMIKACIN [Suspect]
     Active Substance: AMIKACIN
     Indication: Mycobacterium avium complex infection
     Route: 055
  2. ETHAMBUTOL [Concomitant]
     Active Substance: ETHAMBUTOL HYDROCHLORIDE
     Indication: Mycobacterium avium complex infection
     Route: 065
  3. AZITHROMYCIN [Concomitant]
     Active Substance: AZITHROMYCIN
     Indication: Mycobacterium avium complex infection
     Route: 065
  4. RIFABUTIN [Concomitant]
     Active Substance: RIFABUTIN
     Indication: Mycobacterium avium complex infection
     Route: 065

REACTIONS (3)
  - Dyspnoea [Unknown]
  - Bronchospasm [Unknown]
  - Drug ineffective [Unknown]
